FAERS Safety Report 12750548 (Version 3)
Quarter: 2017Q3

REPORT INFORMATION
  Report Type: Spontaneous
  Country: US (occurrence: US)
  Receive Date: 20160915
  Receipt Date: 20170825
  Transmission Date: 20171127
  Serious: Yes (Other)
  Sender: FDA-Public Use
  Company Number: US-ASTELLAS-2016US000411

PATIENT
  Age: 64 Year
  Sex: Male

DRUGS (2)
  1. XTANDI [Suspect]
     Active Substance: ENZALUTAMIDE
     Indication: METASTASES TO LYMPH NODES
     Dosage: 160 MG (40 MG X 4 CAPSULES), ONCE DAILY
     Route: 065
     Dates: start: 201505
  2. XTANDI [Suspect]
     Active Substance: ENZALUTAMIDE
     Indication: HORMONE-REFRACTORY PROSTATE CANCER
     Route: 065
     Dates: start: 20150301

REACTIONS (12)
  - Neck pain [Unknown]
  - Drug ineffective [Unknown]
  - Aortic disorder [Unknown]
  - Hot flush [Not Recovered/Not Resolved]
  - Cerebrovascular accident [Unknown]
  - Hypoaesthesia [Unknown]
  - Blood pressure increased [Recovered/Resolved]
  - Asthenia [Unknown]
  - Prostatic specific antigen increased [Unknown]
  - Extra dose administered [Unknown]
  - Blood pressure increased [Recovered/Resolved]
  - Fatigue [Unknown]

NARRATIVE: CASE EVENT DATE: 201512
